FAERS Safety Report 22022939 (Version 1)
Quarter: 2023Q1

REPORT INFORMATION
  Report Type: Report from Study
  Country: CO (occurrence: CO)
  Receive Date: 20230222
  Receipt Date: 20230222
  Transmission Date: 20230417
  Serious: Yes (Hospitalization)
  Sender: FDA-Public Use
  Company Number: CO-ABBVIE-4314761

PATIENT
  Sex: Female

DRUGS (1)
  1. HUMIRA [Suspect]
     Active Substance: ADALIMUMAB
     Indication: Hidradenitis
     Route: 058
     Dates: start: 20180920, end: 20211115

REACTIONS (4)
  - Fistula [Unknown]
  - Skin wound [Unknown]
  - Fistula discharge [Unknown]
  - Fistula inflammation [Unknown]

NARRATIVE: CASE EVENT DATE: 20220101
